FAERS Safety Report 5000048-2 (Version None)
Quarter: 2006Q2

REPORT INFORMATION
  Report Type: 
  Country: None (occurrence: None)
  Receive Date: 20060509
  Receipt Date: 20060428
  Transmission Date: 20061013
  Serious: Yes (Hospitalization)
  Sender: FDA-Public Use
  Company Number: 200611727GDS

PATIENT
  Age: 73 Year
  Sex: Female

DRUGS (4)
  1. ASPIRIN [Suspect]
     Dosage: 100 MG, TOTAL DAILY, ORAL
     Route: 048
     Dates: end: 20060320
  2. HEPARIN SODIUM [Suspect]
     Dosage: 20000 IU, TOTAL DAILY, INTRAVENOUS
     Route: 042
     Dates: start: 20060314, end: 20060318
  3. PROPAFENONE HCL [Concomitant]
  4. SIMVASTATIN [Concomitant]

REACTIONS (6)
  - ABDOMINAL PAIN [None]
  - ANAEMIA [None]
  - HAEMATOMA [None]
  - HYPOTENSION [None]
  - LOSS OF CONSCIOUSNESS [None]
  - MALAISE [None]
